FAERS Safety Report 9133584 (Version 1)
Quarter: 2013Q1

REPORT INFORMATION
  Report Type: Spontaneous
  Country: US (occurrence: US)
  Receive Date: 20130126
  Receipt Date: 20130126
  Transmission Date: 20140127
  Serious: Yes (Death)
  Sender: FDA-Public Use
  Company Number: US-009507513-1301USA009945

PATIENT
  Age: 65 Year
  Sex: Male

DRUGS (7)
  1. SIMVASTATIN [Suspect]
     Indication: SUICIDE ATTEMPT
     Route: 048
  2. ACETAMINOPHEN (+) CODEINE PHOSPHATE [Suspect]
     Indication: SUICIDE ATTEMPT
     Route: 048
  3. METOPROLOL [Suspect]
     Indication: SUICIDE ATTEMPT
     Route: 048
  4. GABAPENTIN [Suspect]
     Indication: SUICIDE ATTEMPT
     Route: 048
  5. QUETIAPINE FUMARATE [Suspect]
     Indication: SUICIDE ATTEMPT
     Route: 048
  6. ESCITALOPRAM [Suspect]
     Indication: SUICIDE ATTEMPT
     Route: 048
  7. ESZOPICLONE [Suspect]
     Indication: SUICIDE ATTEMPT
     Route: 048

REACTIONS (1)
  - Toxicity to various agents [Fatal]
